FAERS Safety Report 5778985-0 (Version None)
Quarter: 2008Q2

REPORT INFORMATION
  Report Type: 
  Country: None (occurrence: None)
  Receive Date: 20080619
  Receipt Date: 20080125
  Transmission Date: 20081010
  Serious: Yes (Death)
  Sender: FDA-Public Use
  Company Number: US-ROCHE-543759

PATIENT
  Age: 37 Year

DRUGS (5)
  1. CLONAZEPAM [Suspect]
     Indication: DRUG USE FOR UNKNOWN INDICATION
     Dosage: ROUTE: INGESTION.
     Route: 048
  2. OXYCODONE HCL [Suspect]
     Indication: DRUG USE FOR UNKNOWN INDICATION
     Dosage: ROUTE: INGESTION.
     Route: 048
  3. HYDROCODONE BITARTRATE + ACETAMINOPHEN [Suspect]
     Indication: DRUG USE FOR UNKNOWN INDICATION
     Dosage: ACETAMINOPHEN/HYDROCODONE. ROUTE: INGESTION.
     Route: 048
  4. HYDROCODONE BITARTRATE + ACETAMINOPHEN [Suspect]
     Dosage: ACETAMINOPHEN/HYDROCODONE. ROUTE: INGESTION.
     Route: 048
  5. UNSPECIFIED DRUGS [Suspect]
     Indication: DRUG USE FOR UNKNOWN INDICATION
     Route: 065

REACTIONS (1)
  - COMPLETED SUICIDE [None]
